FAERS Safety Report 10451365 (Version 2)
Quarter: 2014Q3

REPORT INFORMATION
  Report Type: Report from Study
  Country: JP (occurrence: JP)
  Receive Date: 20140912
  Receipt Date: 20140912
  Transmission Date: 20150326
  Serious: Yes (Death, Hospitalization, Other)
  Sender: FDA-Public Use
  Company Number: PHHY2011JP09942

PATIENT
  Age: 64 Year
  Sex: Male

DRUGS (8)
  1. SUNITINIB MALATE [Concomitant]
     Active Substance: SUNITINIB MALATE
     Indication: METASTATIC RENAL CELL CARCINOMA
     Dosage: 50 MG, UNK (12MONTH).
     Route: 048
     Dates: start: 20091120, end: 20101130
  2. NEXAVAR [Concomitant]
     Active Substance: SORAFENIB
     Indication: METASTATIC RENAL CELL CARCINOMA
     Dosage: 800 MG, UNK (15MONTH)
     Route: 048
     Dates: start: 20080806, end: 20091027
  3. DIOVAN [Concomitant]
     Active Substance: VALSARTAN
     Dosage: 160 MG, UNK
     Route: 048
  4. AFINITOR [Suspect]
     Active Substance: EVEROLIMUS
     Indication: METASTATIC RENAL CELL CARCINOMA
     Dosage: 10 MG, DAILY
     Route: 048
     Dates: start: 20101214, end: 20110111
  5. INTERFERON NOS [Concomitant]
     Active Substance: INTERFERON
     Dosage: UNK UKN, UNK 15 MONTHS
  6. ATELEC [Concomitant]
     Active Substance: CILNIDIPINE
     Indication: METASTATIC RENAL CELL CARCINOMA
     Dosage: 20 MG, UNK
     Route: 048
  7. INTERLEUKIN-2 [Concomitant]
     Active Substance: ALDESLEUKIN
     Dosage: UNK UKN, UNK 1MONTH
  8. TEGAFUR W/URACIL [Concomitant]
     Active Substance: TEGAFUR\URACIL
     Dosage: UNK UKN, UNK (13MONTH)

REACTIONS (8)
  - Respiratory distress [Recovering/Resolving]
  - Dyspnoea [Recovering/Resolving]
  - Platelet count decreased [Unknown]
  - White blood cell count decreased [Unknown]
  - Interstitial lung disease [Recovering/Resolving]
  - Death [Fatal]
  - Pyrexia [Recovering/Resolving]
  - Malignant neoplasm progression [Not Recovered/Not Resolved]

NARRATIVE: CASE EVENT DATE: 20110111
